FAERS Safety Report 13805647 (Version 3)
Quarter: 2017Q3

REPORT INFORMATION
  Report Type: Spontaneous
  Country: US (occurrence: US)
  Receive Date: 20170728
  Receipt Date: 20170922
  Transmission Date: 20171127
  Serious: Yes (Death, Hospitalization)
  Sender: FDA-Public Use
  Company Number: US-UNITED THERAPEUTICS-UNT-2017-011015

PATIENT
  Age: 68 Year
  Sex: Male

DRUGS (1)
  1. TYVASO [Suspect]
     Active Substance: TREPROSTINIL
     Indication: PULMONARY ARTERIAL HYPERTENSION
     Dosage: 54 ?G, QID
     Dates: start: 20170517, end: 20170904

REACTIONS (5)
  - Peripheral swelling [Unknown]
  - Drug dose omission [Unknown]
  - Vomiting [Unknown]
  - Scleroderma [Fatal]
  - Cough [Unknown]

NARRATIVE: CASE EVENT DATE: 2017
